FAERS Safety Report 17370856 (Version 3)
Quarter: 2021Q2

REPORT INFORMATION
  Report Type: Spontaneous
  Country: US (occurrence: US)
  Receive Date: 20200205
  Receipt Date: 20210527
  Transmission Date: 20210716
  Serious: Yes (Other)
  Sender: FDA-Public Use
  Company Number: US-SA-2020SA022262

PATIENT
  Age: 62 Year
  Sex: Female
  Weight: 76.64 kg

DRUGS (7)
  1. DUPIXENT [Suspect]
     Active Substance: DUPILUMAB
     Indication: DERMATITIS ATOPIC
     Dosage: 300 MG, QOW
     Route: 058
     Dates: start: 201909, end: 201912
  2. HYDROXYZINE HCL [Concomitant]
     Active Substance: HYDROXYZINE HYDROCHLORIDE
  3. SYMBICORT [Concomitant]
     Active Substance: BUDESONIDE\FORMOTEROL FUMARATE DIHYDRATE
  4. CENTRUM SILVER [ASCORBIC ACID;CALCIUM;MINERALS NOS;RETINOL;TOCOPHERYL [Concomitant]
  5. EUCRISA [Concomitant]
     Active Substance: CRISABOROLE
  6. DUPIXENT [Suspect]
     Active Substance: DUPILUMAB
     Indication: DERMATITIS ATOPIC
     Dosage: 600 MG, 1X
     Route: 058
     Dates: start: 20190901, end: 20190901
  7. DUPIXENT [Suspect]
     Active Substance: DUPILUMAB
     Dosage: 1 DF EVERY 14 DAY
     Dates: start: 2021, end: 2021

REACTIONS (8)
  - Pruritus [Unknown]
  - Vision blurred [Unknown]
  - Pruritus [Unknown]
  - Cataract [Unknown]
  - Dermatitis atopic [Unknown]
  - Night blindness [Unknown]
  - Weight increased [Unknown]
  - Product dose omission issue [Unknown]

NARRATIVE: CASE EVENT DATE: 2021
